FAERS Safety Report 13487432 (Version 1)
Quarter: 2017Q2

REPORT INFORMATION
  Report Type: Report from Study
  Country: CO (occurrence: CO)
  Receive Date: 20170426
  Receipt Date: 20170426
  Transmission Date: 20170830
  Serious: Yes (Other)
  Sender: FDA-Public Use
  Company Number: CO-JNJFOC-20170422954

PATIENT
  Age: 46 Year
  Sex: Female
  Weight: 73 kg

DRUGS (2)
  1. AMOXICILLIN. [Suspect]
     Active Substance: AMOXICILLIN
     Indication: PHARYNGITIS
     Route: 065
     Dates: start: 201704
  2. STELARA [Suspect]
     Active Substance: USTEKINUMAB
     Indication: PSORIASIS
     Route: 058
     Dates: start: 20141119, end: 20170213

REACTIONS (2)
  - Pharyngitis [Recovering/Resolving]
  - Rash [Unknown]

NARRATIVE: CASE EVENT DATE: 201704
